FAERS Safety Report 7584287-2 (Version None)
Quarter: 2011Q2

REPORT INFORMATION
  Report Type: 
  Country: None (occurrence: None)
  Receive Date: 20110630
  Receipt Date: 20110621
  Transmission Date: 20111010
  Serious: Yes (Hospitalization)
  Sender: FDA-Public Use
  Company Number: US-ASTRAZENECA-2010SE60762

PATIENT
  Age: 58 Year
  Sex: Male

DRUGS (4)
  1. ADALAT [Concomitant]
     Indication: HYPERTENSION
  2. SYMBICORT [Suspect]
     Indication: CHRONIC OBSTRUCTIVE PULMONARY DISEASE
     Route: 055
     Dates: start: 20100401
  3. DIAZIDE [Concomitant]
     Indication: HYPERTENSION
  4. C-PAP WITHOUT O2 [Concomitant]
     Indication: SLEEP APNOEA SYNDROME

REACTIONS (4)
  - DRUG DOSE OMISSION [None]
  - CARDIAC FAILURE CONGESTIVE [None]
  - IMPLANTABLE DEFIBRILLATOR INSERTION [None]
  - DYSPNOEA [None]
